FAERS Safety Report 6273292-4 (Version None)
Quarter: 2009Q3

REPORT INFORMATION
  Report Type: 
  Country: None (occurrence: None)
  Receive Date: 20090720
  Receipt Date: 20090710
  Transmission Date: 20100115
  Serious: Yes (Other)
  Sender: FDA-Public Use
  Company Number: US-ROCHE-636913

PATIENT
  Sex: Female

DRUGS (13)
  1. BONIVA [Suspect]
     Indication: OSTEOPOROSIS
     Route: 048
  2. FORTEO [Suspect]
     Indication: OSTEOPOROSIS
     Dosage: PRE-FILLED DISPOSABLE PEN
     Route: 065
     Dates: start: 20050101, end: 20070101
  3. FORTEO [Suspect]
     Dosage: LOT NUMBER: A551498C
     Route: 065
     Dates: start: 20090507
  4. FOSAMAX [Suspect]
     Indication: OSTEOPOROSIS
     Route: 048
  5. EVISTA [Suspect]
     Indication: OSTEOPOROSIS
     Route: 048
  6. ACTONEL [Suspect]
     Indication: OSTEOPOROSIS
     Route: 065
  7. NEXIUM [Concomitant]
     Route: 048
  8. ADVAIR HFA [Concomitant]
     Indication: ASTHMA
     Dosage: DRUG: ADVAIR DISKUS, DOSE: 250-50 MCG
  9. FLONASE [Concomitant]
     Dosage: DOSE 2 PUFFS PER NOSTRIL DAILY
  10. FORTEO [Concomitant]
     Dosage: DISPOSABLE PEN, DOSE: 250 MCG/ML; DRUG: FORTEO (COLTER) PEN
  11. FISH OIL [Concomitant]
     Route: 048
  12. NIACIN [Concomitant]
  13. VITAMIN E [Concomitant]
     Dosage: DOSE: 400 UNIT
     Route: 048

REACTIONS (10)
  - AVERSION [None]
  - BACK PAIN [None]
  - BONE DISORDER [None]
  - BURSITIS [None]
  - INTENTIONAL DRUG MISUSE [None]
  - LUMBAR SPINAL STENOSIS [None]
  - MEDICATION ERROR [None]
  - PARAESTHESIA [None]
  - SPINAL OSTEOARTHRITIS [None]
  - STRESS FRACTURE [None]
